FAERS Safety Report 4581299-8 (Version None)
Quarter: 2005Q1

REPORT INFORMATION
  Report Type: 
  Country: None (occurrence: None)
  Receive Date: 20050214
  Receipt Date: 20040922
  Transmission Date: 20050727
  Serious: Yes (Other)
  Sender: FDA-Public Use
  Company Number: US-GLAXOSMITHKLINE-A0526856A

PATIENT
  Age: 27 Year
  Sex: Male

DRUGS (2)
  1. LAMICTAL [Suspect]
     Indication: EPILEPSY
     Dosage: 25MG PER DAY
     Route: 048
     Dates: start: 20040301
  2. TOPAMAX [Concomitant]

REACTIONS (3)
  - CONVULSION [None]
  - HAEMATOCHEZIA [None]
  - INFREQUENT BOWEL MOVEMENTS [None]
